APPROVED DRUG PRODUCT: ATORVASTATIN CALCIUM
Active Ingredient: ATORVASTATIN CALCIUM
Strength: EQ 40MG BASE
Dosage Form/Route: TABLET;ORAL
Application: A091650 | Product #003 | TE Code: AB
Applicant: DR REDDYS LABORATORIES LTD
Approved: Jul 17, 2012 | RLD: No | RS: No | Type: RX